FAERS Safety Report 15106467 (Version 1)
Quarter: 2018Q3

REPORT INFORMATION
  Report Type: Spontaneous
  Country: CA (occurrence: CA)
  Receive Date: 20180704
  Receipt Date: 20180704
  Transmission Date: 20181010
  Serious: Yes (Other)
  Sender: FDA-Public Use
  Company Number: PHHY2018CA031844

PATIENT
  Sex: Female

DRUGS (6)
  1. BENADRYL [Suspect]
     Active Substance: DIPHENHYDRAMINE HYDROCHLORIDE
     Indication: PRODUCT USED FOR UNKNOWN INDICATION
     Route: 065
  2. CELEBREX [Suspect]
     Active Substance: CELECOXIB
     Indication: PRODUCT USED FOR UNKNOWN INDICATION
     Dosage: UNK
     Route: 065
     Dates: start: 2018
  3. CIMZIA [Concomitant]
     Active Substance: CERTOLIZUMAB PEGOL
     Indication: PRODUCT USED FOR UNKNOWN INDICATION
     Dosage: UNK
     Route: 065
  4. COSENTYX [Suspect]
     Active Substance: SECUKINUMAB
     Indication: PRODUCT USED FOR UNKNOWN INDICATION
     Dosage: UNK
     Route: 065
     Dates: start: 2018
  5. ENBREL [Suspect]
     Active Substance: ETANERCEPT
     Indication: ANKYLOSING SPONDYLITIS
     Dosage: 50 MG, UNK (QWK)
     Route: 065
     Dates: start: 2012, end: 201803
  6. ENBREL [Suspect]
     Active Substance: ETANERCEPT
     Dosage: 50 MG,(QWK)
     Route: 065
     Dates: start: 2018

REACTIONS (13)
  - Pharyngeal oedema [Unknown]
  - Tachycardia [Unknown]
  - Abdominal discomfort [Unknown]
  - Drug effect decreased [Unknown]
  - Fatigue [Unknown]
  - Blood iron decreased [Unknown]
  - Night sweats [Unknown]
  - Urticaria [Unknown]
  - Nausea [Unknown]
  - Hyperhidrosis [Unknown]
  - Anaphylactic reaction [Unknown]
  - Drug resistance [Unknown]
  - Ankylosing spondylitis [Unknown]

NARRATIVE: CASE EVENT DATE: 2018
